FAERS Safety Report 8257879-5 (Version None)
Quarter: 2012Q1

REPORT INFORMATION
  Report Type: 
  Country: None (occurrence: None)
  Receive Date: 20111211
  Receipt Date: 20111012
  Transmission Date: 20120608
  Serious: No
  Sender: FDA-Public Use
  Company Number: 201109080

PATIENT
  Age: 71 Year
  Sex: Male

DRUGS (1)
  1. XIAFLEX (CLOSTRIDIAL COLLAGENASE) [Suspect]
     Indication: DUPUYTREN'S CONTRACTURE
     Dosage: 0.58 MG, 1 IN 1 D, INTRALESIONAL
     Route: 026
     Dates: start: 20110927, end: 20110927

REACTIONS (2)
  - DYSURIA [None]
  - BACK PAIN [None]
